FAERS Safety Report 24120892 (Version 1)
Quarter: 2024Q3

REPORT INFORMATION
  Report Type: Report from Study
  Country: GR (occurrence: GR)
  Receive Date: 20240722
  Receipt Date: 20240722
  Transmission Date: 20241016
  Serious: Yes (Hospitalization)
  Sender: ABBVIE
  Company Number: GR-ABBVIE-5843586

PATIENT
  Sex: Female
  Weight: 85 kg

DRUGS (17)
  1. CARBIDOPA\LEVODOPA [Suspect]
     Active Substance: CARBIDOPA\LEVODOPA
     Indication: Parkinson^s disease
     Dosage: MORNING DOSE: 3.0ML; CONTINUOUS RATE: 3.5ML/H; EXTRA DOSE: 2.2ML
     Route: 050
     Dates: start: 20220704
  2. CARBIDOPA\LEVODOPA [Suspect]
     Active Substance: CARBIDOPA\LEVODOPA
     Dosage: MORNING DOSE: 3.0ML; CONTINUOUS RATE: 3.5ML/H; EXTRA DOSE: 2.2ML
     Route: 050
  3. VIOFER [Concomitant]
     Indication: Product used for unknown indication
     Route: 048
  4. LANCIPROL [Concomitant]
     Indication: Product used for unknown indication
     Route: 048
  5. BENSERAZIDE HYDROCHLORIDE\LEVODOPA [Concomitant]
     Active Substance: BENSERAZIDE HYDROCHLORIDE\LEVODOPA
     Indication: Product used for unknown indication
     Dosage: UNIT DOSE: HALF DOSE OF UNSPECIFIED FORM STRENGTH
     Route: 048
  6. TRAZODONE HYDROCHLORIDE [Concomitant]
     Active Substance: TRAZODONE HYDROCHLORIDE
     Indication: Product used for unknown indication
     Dosage: UNIT DOSE: 187.5 MG?FORM STRENGTH: 150 MG
     Route: 048
  7. CARVEDILOL [Concomitant]
     Active Substance: CARVEDILOL
     Indication: Product used for unknown indication
     Dosage: UNIT DOSE: 3.125 OF A FORM STRENGTH OF 6.25MG
     Route: 048
  8. MESTINON [Concomitant]
     Active Substance: PYRIDOSTIGMINE BROMIDE
     Indication: Product used for unknown indication
     Dosage: FORM STRENGTH: 60 MILLIGRAM
     Route: 048
  9. ARICEPT [Concomitant]
     Active Substance: DONEPEZIL HYDROCHLORIDE
     Indication: Product used for unknown indication
     Route: 048
  10. Seropram [Concomitant]
     Indication: Product used for unknown indication
     Route: 048
  11. LORAZEPAM [Concomitant]
     Active Substance: LORAZEPAM
     Indication: Product used for unknown indication
     Dosage: UNIT DOSE: 1.25 MG OF A FORM STRENGTH 2.5MG
     Route: 048
  12. LORAZEPAM [Concomitant]
     Active Substance: LORAZEPAM
     Indication: Product used for unknown indication
     Dosage: FORM STRENGTH: 1 MG
     Route: 048
  13. PYRIDOSTIGMINE [Concomitant]
     Active Substance: PYRIDOSTIGMINE
     Indication: Product used for unknown indication
     Dosage: FORM STRENGTH: 60 MG
     Route: 048
  14. TRANXENE [Concomitant]
     Active Substance: CLORAZEPATE DIPOTASSIUM
     Indication: Stress
     Dosage: FORM STRENGTH: 05 MILLIGRAM
     Route: 048
  15. TRANXENE [Concomitant]
     Active Substance: CLORAZEPATE DIPOTASSIUM
     Indication: Stress
     Dosage: FORM STRENGTH: 20 MILLIGRAM
     Route: 048
  16. PRAMIPEXOLE [Concomitant]
     Active Substance: PRAMIPEXOLE\PRAMIPEXOLE DIHYDROCHLORIDE
     Indication: Product used for unknown indication
     Dosage: UNIT DOSE: 2.1MG
     Route: 048
  17. QUETIAPINE [Concomitant]
     Active Substance: QUETIAPINE
     Indication: Product used for unknown indication
     Route: 048

REACTIONS (5)
  - COVID-19 [Not Recovered/Not Resolved]
  - Pyrexia [Recovered/Resolved]
  - Oxygen saturation decreased [Not Recovered/Not Resolved]
  - Infection [Recovered/Resolved]
  - Hyperkinesia [Not Recovered/Not Resolved]

NARRATIVE: CASE EVENT DATE: 20240101
